FAERS Safety Report 24668856 (Version 1)
Quarter: 2024Q4

REPORT INFORMATION
  Report Type: Spontaneous
  Country: PK (occurrence: PK)
  Receive Date: 20241127
  Receipt Date: 20241127
  Transmission Date: 20250114
  Serious: Yes (Other)
  Sender: REGENERON
  Company Number: PK-BAYER-2024A165442

PATIENT
  Sex: Male

DRUGS (2)
  1. EYLEA [Suspect]
     Active Substance: AFLIBERCEPT
     Indication: Diabetic retinal oedema
     Dosage: 2MG INJECTION IN MONTH, 40 MG/ML, SOLUTION FOR INJECTION
  2. UNSPECIFIED INGREDIENT [Concomitant]
     Active Substance: UNSPECIFIED INGREDIENT
     Indication: Diabetic retinal oedema
     Dosage: UNK

REACTIONS (2)
  - Blindness unilateral [Unknown]
  - Endophthalmitis [Not Recovered/Not Resolved]
